FAERS Safety Report 20291088 (Version 2)
Quarter: 2022Q1

REPORT INFORMATION
  Report Type: Spontaneous
  Country: IR (occurrence: IR)
  Receive Date: 20220104
  Receipt Date: 20220121
  Transmission Date: 20220423
  Serious: Yes (Hospitalization, Other)
  Sender: FDA-Public Use
  Company Number: IR-MLMSERVICE-20211215-3267535-1

PATIENT
  Age: 62 Year
  Sex: Female

DRUGS (7)
  1. MEMANTINE [Suspect]
     Active Substance: MEMANTINE
     Indication: Dementia with Lewy bodies
     Dosage: 5 MILLIGRAM, QD
     Route: 065
     Dates: start: 2020
  2. QUETIAPINE FUMARATE [Suspect]
     Active Substance: QUETIAPINE FUMARATE
     Indication: Bipolar I disorder
     Dosage: UNK
     Route: 065
     Dates: start: 2020, end: 2020
  3. ARIPIPRAZOLE [Suspect]
     Active Substance: ARIPIPRAZOLE
     Indication: Bipolar I disorder
     Dosage: UNK
     Route: 065
     Dates: start: 2020, end: 2020
  4. CARBIDOPA\LEVODOPA [Suspect]
     Active Substance: CARBIDOPA\LEVODOPA
     Indication: Dementia with Lewy bodies
     Dosage: 1 DOSAGE FORM, BID
     Route: 065
     Dates: start: 2020
  5. CLOZAPINE [Suspect]
     Active Substance: CLOZAPINE
     Indication: Bipolar I disorder
     Dosage: UNK
     Route: 065
     Dates: start: 2020, end: 2020
  6. LITHIUM CARBONATE [Concomitant]
     Active Substance: LITHIUM CARBONATE
     Indication: Bipolar I disorder
     Dosage: 300 MILLIGRAM, TID
     Route: 065
     Dates: start: 2020
  7. LAMOTRIGINE [Concomitant]
     Active Substance: LAMOTRIGINE
     Indication: Bipolar I disorder
     Dosage: 300 MILLIGRAM, BID
     Route: 065
     Dates: start: 2020

REACTIONS (5)
  - Condition aggravated [Recovering/Resolving]
  - Bipolar I disorder [Recovering/Resolving]
  - Parkinsonism [Recovering/Resolving]
  - Salivary hypersecretion [Unknown]
  - Sedation complication [Unknown]

NARRATIVE: CASE EVENT DATE: 20200101
